FAERS Safety Report 21071347 (Version 3)
Quarter: 2022Q3

REPORT INFORMATION
  Report Type: Report from Study
  Country: PL (occurrence: PL)
  Receive Date: 20220712
  Receipt Date: 20220909
  Transmission Date: 20221026
  Serious: Yes (Hospitalization)
  Sender: FDA-Public Use
  Company Number: PL-BRISTOL-MYERS SQUIBB COMPANY-2022-070176

PATIENT
  Age: 18 Year
  Sex: Female
  Weight: 65 kg

DRUGS (2)
  1. Salofalk [Concomitant]
     Indication: Colitis ulcerative
     Route: 048
     Dates: start: 20200305, end: 20220606
  2. Salofalk [Concomitant]
     Dosage: EVERY 8 HOURS
     Route: 048
     Dates: start: 20220607

REACTIONS (1)
  - Abdominal pain [Recovered/Resolved]

NARRATIVE: CASE EVENT DATE: 20220523
